FAERS Safety Report 4860424-5 (Version None)
Quarter: 2005Q4

REPORT INFORMATION
  Report Type: 
  Country: None (occurrence: None)
  Receive Date: 20051215
  Receipt Date: 20051205
  Transmission Date: 20060501
  Serious: Yes (Hospitalization)
  Sender: FDA-Public Use
  Company Number: GXBR2005US01761

PATIENT
  Age: 69 Year
  Sex: Male
  Weight: 102 kg

DRUGS (21)
  1. AMIODARONE HCL [Suspect]
     Indication: NODAL RHYTHM
     Dosage: 400MG PO TID, ORAL
     Route: 048
     Dates: start: 20050714, end: 20050728
  2. AVANDIA [Concomitant]
  3. SINGULAIR [Concomitant]
  4. ATACAND [Concomitant]
  5. ASPIRIN [Concomitant]
  6. PROZAC [Concomitant]
  7. NORVASC /DEN/ (AMLODIPINE BESILATE) [Concomitant]
  8. K-DUR 10 [Concomitant]
  9. FUROSEMIDE [Concomitant]
  10. NEURONTIN [Concomitant]
  11. ULTRAM [Concomitant]
  12. MEXILETINE HCL [Concomitant]
  13. ALAMAST (PEMIROLAST POTASSIUM) [Concomitant]
  14. FLOMAX [Concomitant]
  15. CAVERJECT [Concomitant]
  16. ALBUTEROL [Concomitant]
  17. FLOVENT [Concomitant]
  18. ZETIA [Concomitant]
  19. PREVACID [Concomitant]
  20. PROVIGIL [Concomitant]
  21. PLAVIX [Concomitant]

REACTIONS (9)
  - AGEUSIA [None]
  - ALOPECIA [None]
  - ANOSMIA [None]
  - BALANCE DISORDER [None]
  - FALL [None]
  - FATIGUE [None]
  - LUNG DISORDER [None]
  - PNEUMONIA [None]
  - RENAL FAILURE [None]
